FAERS Safety Report 26083327 (Version 1)
Quarter: 2025Q4

REPORT INFORMATION
  Report Type: Spontaneous
  Country: US (occurrence: US)
  Receive Date: 20251124
  Receipt Date: 20251124
  Transmission Date: 20260117
  Serious: No
  Sender: AVADEL CNS PHARMACEUTICALS, LLC
  Company Number: US-AVADEL CNS PHARMACEUTICALS, LLC-2025AVA02122

PATIENT
  Age: 29 Year
  Sex: Male

DRUGS (2)
  1. LUMRYZ [Suspect]
     Active Substance: SODIUM OXYBATE
     Indication: Narcolepsy
     Dosage: 7.5 G, ONCE NIGHTLY
  2. LUMRYZ [Suspect]
     Active Substance: SODIUM OXYBATE
     Dosage: 15 G, ONCE

REACTIONS (1)
  - Extra dose administered [Recovered/Resolved]
